FAERS Safety Report 11699986 (Version 1)
Quarter: 2015Q4

REPORT INFORMATION
  Report Type: Spontaneous
  Country: US (occurrence: None)
  Receive Date: 20151104
  Receipt Date: 20151104
  Transmission Date: 20160304
  Serious: No
  Sender: FDA-Public Use
  Company Number: None

PATIENT

DRUGS (1)
  1. ZOLEDRONIC [Suspect]
     Active Substance: ZOLEDRONIC ACID
     Indication: OSTEOPENIA
     Dosage: INJECTION (INFUSION)

REACTIONS (12)
  - Jaw disorder [None]
  - Fatigue [None]
  - Decreased appetite [None]
  - Toothache [None]
  - Chills [None]
  - Feeling abnormal [None]
  - Bone pain [None]
  - Skin warm [None]
  - Nausea [None]
  - Headache [None]
  - Activities of daily living impaired [None]
  - Pain [None]

NARRATIVE: CASE EVENT DATE: 20150731
